FAERS Safety Report 17117651 (Version 1)
Quarter: 2019Q4

REPORT INFORMATION
  Report Type: Spontaneous
  Country: GB (occurrence: GB)
  Receive Date: 20191205
  Receipt Date: 20191205
  Transmission Date: 20200122
  Serious: Yes (Hospitalization, Other)
  Sender: FDA-Public Use
  Company Number: GB-BAYER-2019-214225

PATIENT
  Age: 35 Year
  Sex: Male
  Weight: 76.2 kg

DRUGS (2)
  1. CIPROFLOXACIN. [Suspect]
     Active Substance: CIPROFLOXACIN
     Indication: ENTEROCOCCAL INFECTION
     Dosage: 100 MG, QD
     Route: 048
     Dates: start: 20191031, end: 20191102
  2. CO-AMOXICLAVE [Concomitant]
     Active Substance: AMOXICILLIN\CLAVULANATE POTASSIUM

REACTIONS (5)
  - Fatigue [Unknown]
  - Myalgia [Unknown]
  - Dizziness [Unknown]
  - Tendon pain [Not Recovered/Not Resolved]
  - Arthralgia [Unknown]

NARRATIVE: CASE EVENT DATE: 20191102
